FAERS Safety Report 21130679 (Version 1)
Quarter: 2022Q3

REPORT INFORMATION
  Report Type: Spontaneous
  Country: US (occurrence: None)
  Receive Date: 20220725
  Receipt Date: 20220725
  Transmission Date: 20221027
  Serious: No
  Sender: FDA-Public Use
  Company Number: None

PATIENT
  Age: 22 Year
  Sex: Female
  Weight: 170.1 kg

DRUGS (1)
  1. HUMIRA [Suspect]
     Active Substance: ADALIMUMAB
     Indication: Hidradenitis
     Dosage: INJECT 40MG  SUBCUTANEOUSLY ONCE A WEEK  AS DIRECTED
     Route: 058
     Dates: start: 202203

REACTIONS (2)
  - Illness [None]
  - Therapy interrupted [None]
